FAERS Safety Report 7877674-6 (Version None)
Quarter: 2011Q4

REPORT INFORMATION
  Report Type: 
  Country: None (occurrence: None)
  Receive Date: 20111031
  Receipt Date: 20111031
  Transmission Date: 20120403
  Serious: Yes (Hospitalization, Other)
  Sender: FDA-Public Use
  Company Number: None

PATIENT
  Age: 48 Year
  Sex: Male
  Weight: 60.327 kg

DRUGS (2)
  1. HUMIRA [Suspect]
     Indication: RHEUMATOID ARTHRITIS
     Dosage: 1 INJECTION 0.8 ML
     Dates: start: 20100225, end: 20100425
  2. HUMIRA [Suspect]
     Indication: SYSTEMIC LUPUS ERYTHEMATOSUS
     Dosage: 1 INJECTION 0.8 ML
     Dates: start: 20100225, end: 20100425

REACTIONS (3)
  - SWELLING FACE [None]
  - NERVOUS SYSTEM DISORDER [None]
  - INFECTION [None]
